FAERS Safety Report 9262854 (Version 1)
Quarter: 2013Q2

REPORT INFORMATION
  Report Type: Spontaneous
  Country: US (occurrence: US)
  Receive Date: 20130430
  Receipt Date: 20130430
  Transmission Date: 20140414
  Serious: Yes (Hospitalization)
  Sender: FDA-Public Use
  Company Number: US-BAYER-2013-052094

PATIENT
  Age: 32 Year
  Sex: Female
  Weight: 70.3 kg

DRUGS (8)
  1. YAZ [Suspect]
  2. GIANVI [Suspect]
  3. OCELLA [Suspect]
  4. CEPHALEXIN [Concomitant]
     Dosage: 500 MG, QID
     Route: 048
     Dates: start: 20110825
  5. HYDROCHLOROTHIAZIDE [Concomitant]
     Indication: OEDEMA PERIPHERAL
     Dosage: 12.5 MG, DAILY
     Route: 048
     Dates: start: 20110902
  6. CYCLOBENZAPRINE HYDROCHLORIDE [Concomitant]
     Dosage: 10 MG, 3 TIMES DAILY IF NEEDED
     Route: 048
     Dates: start: 20110907
  7. IBUPROFEN [Concomitant]
     Dosage: 800 MG, 3 TIMES DAILY IF NEEDED
     Route: 048
     Dates: start: 20110907
  8. ANTIBIOTICS [Concomitant]

REACTIONS (1)
  - Deep vein thrombosis [None]
